FAERS Safety Report 9687243 (Version 1)
Quarter: 2013Q4

REPORT INFORMATION
  Report Type: Spontaneous
  Country: US (occurrence: US)
  Receive Date: 20131113
  Receipt Date: 20131113
  Transmission Date: 20140711
  Serious: Yes (Other)
  Sender: FDA-Public Use
  Company Number: US-ROCHE-1301131

PATIENT
  Age: 62 Year
  Sex: Female

DRUGS (3)
  1. XELODA [Suspect]
     Indication: BREAST CANCER
     Route: 048
     Dates: start: 201304
  2. BABY ASPIRIN [Concomitant]
  3. ADVIL [Concomitant]
     Dosage: 2 TABLETS
     Route: 065

REACTIONS (6)
  - Metastases to bone [Unknown]
  - Pain in extremity [Recovering/Resolving]
  - Back pain [Unknown]
  - Biopsy bone [Unknown]
  - Abasia [Recovering/Resolving]
  - Bone pain [Unknown]
